FAERS Safety Report 9285982 (Version 3)
Quarter: 2014Q2

REPORT INFORMATION
  Report Type: Spontaneous
  Country: US (occurrence: US)
  Receive Date: 20130513
  Receipt Date: 20140530
  Transmission Date: 20141212
  Serious: Yes (Hospitalization, Disabling, Other)
  Sender: FDA-Public Use
  Company Number: US-BAYER-2013-057155

PATIENT
  Age: 40 Year
  Sex: Female
  Weight: 58.96 kg

DRUGS (9)
  1. YAZ [Suspect]
     Indication: CONTRACEPTION
     Dosage: UNK
     Dates: start: 200712, end: 20080702
  2. YASMIN [Suspect]
     Indication: CONTRACEPTION
     Dosage: UNK
     Dates: start: 20061204, end: 200712
  3. OCELLA [Suspect]
     Indication: CONTRACEPTION
     Dosage: UNK
     Dates: start: 200807, end: 2011
  4. TOPAMAX [Concomitant]
     Route: 048
  5. SYNTHROID [Concomitant]
     Route: 048
  6. B12 [Concomitant]
  7. PREDNISONE [Concomitant]
     Route: 048
  8. LEVAQUIN [Concomitant]
     Indication: ANXIETY
     Route: 048
  9. LEXAPRO [Concomitant]

REACTIONS (16)
  - Cerebrovascular accident [None]
  - Cerebral infarction [None]
  - Brain stem infarction [None]
  - Ischaemic stroke [None]
  - Basilar artery thrombosis [None]
  - Cholelithiasis [None]
  - Injury [None]
  - Pain [None]
  - Deformity [None]
  - Anxiety [None]
  - Anhedonia [None]
  - Muscular weakness [None]
  - Agraphia [None]
  - Speech disorder [None]
  - Mental impairment [None]
  - Activities of daily living impaired [None]
